FAERS Safety Report 9861647 (Version 1)
Quarter: 2014Q1

REPORT INFORMATION
  Report Type: Spontaneous
  Country: US (occurrence: None)
  Receive Date: 20140131
  Receipt Date: 20140131
  Transmission Date: 20141002
  Serious: Yes (Other)
  Sender: FDA-Public Use
  Company Number: None

PATIENT
  Age: 83 Year
  Sex: Male
  Weight: 95.26 kg

DRUGS (12)
  1. LEVOFLOXACIN [Suspect]
     Indication: ATYPICAL PNEUMONIA
     Route: 048
     Dates: start: 20131219, end: 20131224
  2. LOSARTIN [Concomitant]
  3. CITALOPRAM [Concomitant]
  4. ALLIPURINOL [Concomitant]
  5. OMEPRAZOLE [Concomitant]
  6. PRAVASTATIN [Concomitant]
  7. TAMSULOSIN [Concomitant]
  8. AMLODIPINE [Concomitant]
  9. ASPIRIN [Concomitant]
  10. FISH OIL [Concomitant]
  11. D3 [Concomitant]
  12. B12 [Concomitant]

REACTIONS (5)
  - Tenderness [None]
  - Musculoskeletal disorder [None]
  - Arthropathy [None]
  - Weight bearing difficulty [None]
  - Activities of daily living impaired [None]
